FAERS Safety Report 12078112 (Version 3)
Quarter: 2017Q1

REPORT INFORMATION
  Report Type: Report from Study
  Country: None (occurrence: US)
  Receive Date: 20160215
  Receipt Date: 20170303
  Transmission Date: 20170428
  Serious: Yes (Other)
  Sender: FDA-Public Use
  Company Number: US-ABBVIE-16P-163-1558249-00

PATIENT
  Sex: Female
  Weight: 114.86 kg

DRUGS (5)
  1. XANAX [Concomitant]
     Active Substance: ALPRAZOLAM
     Indication: PANIC ATTACK
     Dosage: 1-2 TIMES PER YEAR
     Route: 065
  2. CARBITROL [Concomitant]
     Indication: COMPLEX PARTIAL SEIZURES
     Route: 065
  3. XANAX [Concomitant]
     Active Substance: ALPRAZOLAM
     Indication: ANXIETY
  4. DEPAKOTE [Suspect]
     Active Substance: DIVALPROEX SODIUM
     Indication: SEIZURE
     Dosage: 3 TABLETS TID AND 4 TABS QHS
     Route: 048
     Dates: start: 1996
  5. ESTRADIOL. [Concomitant]
     Active Substance: ESTRADIOL
     Indication: PRODUCT USED FOR UNKNOWN INDICATION
     Dosage: PATCH
     Route: 062

REACTIONS (2)
  - Tuberous sclerosis [Not Recovered/Not Resolved]
  - Astrocytoma [Recovered/Resolved]

NARRATIVE: CASE EVENT DATE: 2009
